FAERS Safety Report 11124592 (Version 1)
Quarter: 2015Q2

REPORT INFORMATION
  Report Type: Spontaneous
  Country: US (occurrence: None)
  Receive Date: 20150519
  Receipt Date: 20150519
  Transmission Date: 20150821
  Serious: Yes (Other)
  Sender: FDA-Public Use
  Company Number: None

PATIENT
  Age: 24 Year
  Sex: Male

DRUGS (4)
  1. THORAZINE [Suspect]
     Active Substance: CHLORPROMAZINE
  2. LAMICTAL ER [Concomitant]
  3. THORAZINE [Suspect]
     Active Substance: CHLORPROMAZINE
     Indication: POST-TRAUMATIC STRESS DISORDER
     Route: 048
  4. THORAZINE [Suspect]
     Active Substance: CHLORPROMAZINE
     Indication: ANXIETY
     Route: 048

REACTIONS (5)
  - Bedridden [None]
  - Drug withdrawal syndrome [None]
  - Vomiting [None]
  - Product commingling [None]
  - Loss of consciousness [None]

NARRATIVE: CASE EVENT DATE: 20150518
